FAERS Safety Report 4830574-8 (Version None)
Quarter: 2005Q4

REPORT INFORMATION
  Report Type: 
  Country: None (occurrence: None)
  Receive Date: 20051115
  Receipt Date: 20051104
  Transmission Date: 20060501
  Serious: Yes (Hospitalization)
  Sender: FDA-Public Use
  Company Number: 2005138732

PATIENT
  Age: 45 Year
  Sex: Female
  Weight: 53 kg

DRUGS (9)
  1. XANAX [Suspect]
     Indication: ILL-DEFINED DISORDER
     Dosage: ORAL
     Route: 048
     Dates: start: 20050603, end: 20050826
  2. TAXOL [Suspect]
     Indication: LUNG CARCINOMA CELL TYPE UNSPECIFIED STAGE 0
     Dosage: INTRAVENOUS
     Route: 042
     Dates: end: 20050801
  3. PARAPLATIN [Suspect]
     Indication: LUNG CARCINOMA CELL TYPE UNSPECIFIED STAGE 0
     Dosage: INTRAVENOUS
     Route: 042
     Dates: end: 20050801
  4. LEVOTHYROXINE SODIUM [Concomitant]
  5. NEXIUM [Concomitant]
  6. DAFALGAN CODEINE (CODEINE PHOSPHATE, PARACETAMOL) [Concomitant]
  7. AUGMENTIN '125' [Concomitant]
  8. GRANOCYTE (LENOGRASTIM) [Concomitant]
  9. GAVISCON [Concomitant]

REACTIONS (8)
  - ALANINE AMINOTRANSFERASE INCREASED [None]
  - ANTINUCLEAR ANTIBODY POSITIVE [None]
  - ASPARTATE AMINOTRANSFERASE INCREASED [None]
  - DERMATITIS BULLOUS [None]
  - LIVEDO RETICULARIS [None]
  - SYSTEMIC LUPUS ERYTHEMATOSUS RASH [None]
  - TOXIC EPIDERMAL NECROLYSIS [None]
  - TOXIC SKIN ERUPTION [None]
